FAERS Safety Report 8489505-4 (Version None)
Quarter: 2012Q3

REPORT INFORMATION
  Report Type: 
  Country: None (occurrence: None)
  Receive Date: 20120705
  Receipt Date: 20120625
  Transmission Date: 20120928
  Serious: Yes (Other)
  Sender: FDA-Public Use
  Company Number: US-ASTRAZENECA-2012SE39118

PATIENT
  Age: 90 Year
  Sex: Female

DRUGS (4)
  1. ATENOLOL [Concomitant]
     Indication: HYPERTENSION
  2. ZOCOR [Concomitant]
     Indication: HYPOCHOLESTEROLAEMIA
  3. NEXIUM [Suspect]
     Indication: ULCER HAEMORRHAGE
     Route: 048
  4. NORVASC [Concomitant]
     Indication: HYPERTENSION

REACTIONS (5)
  - INTENTIONAL DRUG MISUSE [None]
  - ABASIA [None]
  - CEREBROVASCULAR ACCIDENT [None]
  - ULCER HAEMORRHAGE [None]
  - DYSGRAPHIA [None]
